FAERS Safety Report 7731234-6 (Version None)
Quarter: 2011Q3

REPORT INFORMATION
  Report Type: 
  Country: None (occurrence: None)
  Receive Date: 20110906
  Receipt Date: 20110829
  Transmission Date: 20111222
  Serious: Yes (Hospitalization)
  Sender: FDA-Public Use
  Company Number: US-GENZYME-FABR-1002118

PATIENT
  Sex: Female
  Weight: 105 kg

DRUGS (2)
  1. RESPIRATORY AGENTS [Concomitant]
     Indication: PRODUCT USED FOR UNKNOWN INDICATION
     Dosage: UNK UNK, UNK
     Route: 055
  2. FABRAZYME [Suspect]
     Indication: FABRY'S DISEASE
     Dosage: 1 MG/KG, Q4W
     Route: 042
     Dates: start: 20070920

REACTIONS (3)
  - HEMIPARESIS [None]
  - SPEECH DISORDER [None]
  - CEREBROVASCULAR ACCIDENT [None]
